FAERS Safety Report 18953317 (Version 1)
Quarter: 2021Q1

REPORT INFORMATION
  Report Type: Spontaneous
  Country: US (occurrence: US)
  Receive Date: 20210301
  Receipt Date: 20210301
  Transmission Date: 20210420
  Serious: No
  Sender: FDA-Public Use
  Company Number: US-BAUSCH-BL-2021-005170

PATIENT
  Age: 50 Year
  Sex: Female

DRUGS (4)
  1. EXFORGE [Concomitant]
     Active Substance: AMLODIPINE BESYLATE\VALSARTAN
     Indication: PRODUCT USED FOR UNKNOWN INDICATION
     Route: 048
  2. LUMIFY [Suspect]
     Active Substance: BRIMONIDINE TARTRATE
     Indication: OCULAR HYPERAEMIA
     Dosage: 1 GTT, AS NEEEDED
     Route: 047
  3. METFORMIN [Concomitant]
     Active Substance: METFORMIN HYDROCHLORIDE
     Indication: PRODUCT USED FOR UNKNOWN INDICATION
     Route: 048
  4. ADVANCED EYE RELIEF/ REDNESS MAXIMUM RELIEF [Suspect]
     Active Substance: HYPROMELLOSES\NAPHAZOLINE HYDROCHLORIDE
     Indication: OCULAR HYPERAEMIA
     Dosage: 1 GTT, AS NEEDED
     Route: 047

REACTIONS (3)
  - Dry eye [Unknown]
  - Product packaging quantity issue [Unknown]
  - Therapeutic product effect incomplete [Unknown]
